FAERS Safety Report 8817767 (Version 1)
Quarter: 2012Q4

REPORT INFORMATION
  Report Type: 
  Country: US (occurrence: US)
  Receive Date: 20121001
  Receipt Date: 20121001
  Transmission Date: 20130627
  Serious: Yes (Hospitalization)
  Sender: FDA-Public Use
  Company Number: US-PFIZER INC-2012238145

PATIENT
  Age: 57 Year
  Sex: Female
  Weight: 124 kg

DRUGS (1)
  1. REVATIO [Suspect]
     Indication: PULMONARY ARTERIAL HYPERTENSION
     Dosage: 20 mg, 3x/day
     Route: 048

REACTIONS (5)
  - Pulmonary hypertension [Unknown]
  - Cardiac cirrhosis [Unknown]
  - Scleroderma [Unknown]
  - Atrial fibrillation [Unknown]
  - Blood disorder [Unknown]
